FAERS Safety Report 6653292-2 (Version None)
Quarter: 2010Q1

REPORT INFORMATION
  Report Type: 
  Country: None (occurrence: None)
  Receive Date: 20100326
  Receipt Date: 20100316
  Transmission Date: 20100710
  Serious: Yes (Other)
  Sender: FDA-Public Use
  Company Number: FR-ROCHE-683821

PATIENT
  Age: 18 Year
  Sex: Male
  Weight: 65 kg

DRUGS (2)
  1. ISOTRETINOIN [Suspect]
     Indication: ACNE
     Route: 065
     Dates: start: 19900101
  2. ISOTRETINOIN [Suspect]
     Route: 065
     Dates: end: 19920101

REACTIONS (9)
  - ALOPECIA [None]
  - ANXIETY [None]
  - BIPOLAR DISORDER [None]
  - DEPRESSION [None]
  - FATIGUE [None]
  - FEAR [None]
  - MOUTH INJURY [None]
  - SOCIAL PROBLEM [None]
  - SUICIDAL IDEATION [None]
